FAERS Safety Report 5591821-0 (Version None)
Quarter: 2008Q1

REPORT INFORMATION
  Report Type: 
  Country: None (occurrence: None)
  Receive Date: 20080115
  Receipt Date: 20080103
  Transmission Date: 20080703
  Serious: Yes (Other)
  Sender: FDA-Public Use
  Company Number: B0401050A

PATIENT
  Age: 30 Year
  Sex: Female

DRUGS (1)
  1. SEROXAT [Suspect]
     Route: 065
     Dates: start: 20020117

REACTIONS (50)
  - AFFECTIVE DISORDER [None]
  - AGGRESSION [None]
  - AGITATION [None]
  - AGORAPHOBIA [None]
  - ANXIETY [None]
  - APATHY [None]
  - BLEPHAROSPASM [None]
  - CHEST PAIN [None]
  - CHILLS [None]
  - DEREALISATION [None]
  - DISCOMFORT [None]
  - DISTURBANCE IN ATTENTION [None]
  - DIZZINESS [None]
  - DRUG WITHDRAWAL SYNDROME [None]
  - DYSKINESIA [None]
  - EAR PAIN [None]
  - FATIGUE [None]
  - FEELING COLD [None]
  - FLATULENCE [None]
  - GASTROINTESTINAL SOUNDS ABNORMAL [None]
  - HEADACHE [None]
  - HYPOAESTHESIA FACIAL [None]
  - IRRITABILITY [None]
  - LETHARGY [None]
  - LOSS OF LIBIDO [None]
  - MEMORY IMPAIRMENT [None]
  - MOOD SWINGS [None]
  - MUSCLE SPASMS [None]
  - MUSCLE TIGHTNESS [None]
  - MUSCLE TWITCHING [None]
  - MUSCULAR WEAKNESS [None]
  - MUSCULOSKELETAL DISCOMFORT [None]
  - MUSCULOSKELETAL DISORDER [None]
  - NERVOUSNESS [None]
  - NIGHT SWEATS [None]
  - NIGHTMARE [None]
  - PAIN IN EXTREMITY [None]
  - PALPITATIONS [None]
  - PANIC REACTION [None]
  - PARAESTHESIA [None]
  - PHOBIA [None]
  - PHOTOSENSITIVITY REACTION [None]
  - PSYCHIATRIC SYMPTOM [None]
  - RESTLESS LEGS SYNDROME [None]
  - RETCHING [None]
  - SKIN BURNING SENSATION [None]
  - SLEEP DISORDER [None]
  - TENSION [None]
  - THOUGHT INSERTION [None]
  - VISUAL DISTURBANCE [None]
